FAERS Safety Report 11860362 (Version 3)
Quarter: 2016Q1

REPORT INFORMATION
  Report Type: Spontaneous
  Country: FR (occurrence: FR)
  Receive Date: 20151222
  Receipt Date: 20160205
  Transmission Date: 20160526
  Serious: Yes (Hospitalization)
  Sender: FDA-Public Use
  Company Number: FR-PFIZER INC-2015454545

PATIENT
  Age: 57 Year
  Sex: Male

DRUGS (15)
  1. KEPPRA [Suspect]
     Active Substance: LEVETIRACETAM
     Dosage: 500 MG, 2X/DAY
     Route: 048
  2. ADVAGRAF [Suspect]
     Active Substance: TACROLIMUS
     Dosage: 2 DF, ONCE DAILY
     Route: 048
     Dates: start: 201510
  3. GALVUS [Suspect]
     Active Substance: VILDAGLIPTIN
     Dosage: 50 MG, DAILY
     Route: 048
  4. AVLOCARDYL /00030001/ [Suspect]
     Active Substance: PROPRANOLOL HYDROCHLORIDE
     Dosage: 160 MG, 1X/DAY
     Route: 048
  5. SOLUPRED /00016217/ [Suspect]
     Active Substance: PREDNISOLONE
     Dosage: 2 DF ONCE DAILY
     Route: 048
  6. TAHOR [Suspect]
     Active Substance: ATORVASTATIN CALCIUM
     Dosage: 40 MG, 1X/DAY
     Route: 048
  7. CELLCEPT [Suspect]
     Active Substance: MYCOPHENOLATE MOFETIL\MYCOPHENOLATE MOFETIL HYDROCHLORIDE
     Dosage: 1000 MG, 2X/DAY (500 MG 2 DF TWICE DAILY)
     Route: 048
     Dates: start: 201510
  8. AMLOR [Suspect]
     Active Substance: AMLODIPINE BESYLATE
     Dosage: 2 DF, DAILY
     Route: 048
  9. PANTOPRAZOLE [Suspect]
     Active Substance: PANTOPRAZOLE SODIUM
     Dosage: UNK, 1X/DAY
     Route: 048
  10. BACTRIM [Suspect]
     Active Substance: SULFAMETHOXAZOLE\TRIMETHOPRIM
     Dosage: UNK UNK, 2X/DAY
     Route: 048
     Dates: start: 200510
  11. KARDEGIC [Suspect]
     Active Substance: ASPIRIN LYSINE
     Dosage: 75 MG, 1X/DAY
     Route: 048
  12. CATAPRESSAN /00171101/ [Suspect]
     Active Substance: CLONIDINE
     Dosage: 0.30 MG, 2X/DAY (0.15 MG, 2 DF TWICE DAILY)
     Route: 048
  13. EUPRESSYL /00631801/ [Suspect]
     Active Substance: URAPIDIL
     Dosage: 60 MG, 2X/DAY
     Route: 048
  14. STAGID [Suspect]
     Active Substance: METFORMIN PAMOATE
     Dosage: 700 MG, 3X/DAY
     Route: 048
  15. CHOLURSO [Suspect]
     Active Substance: URSODIOL
     Dosage: 500 MG, 2X/DAY
     Route: 048

REACTIONS (2)
  - Condition aggravated [Not Recovered/Not Resolved]
  - Anaemia [Not Recovered/Not Resolved]

NARRATIVE: CASE EVENT DATE: 20151108
